FAERS Safety Report 7591813-6 (Version None)
Quarter: 2011Q3

REPORT INFORMATION
  Report Type: 
  Country: None (occurrence: None)
  Receive Date: 20110701
  Receipt Date: 20110701
  Transmission Date: 20111222
  Serious: Yes (Hospitalization)
  Sender: FDA-Public Use
  Company Number: None

PATIENT
  Age: 25 Year
  Sex: Female
  Weight: 107 kg

DRUGS (1)
  1. DASATINIB [Suspect]
     Indication: ACUTE MYELOID LEUKAEMIA
     Dosage: 100MG DAILY PO
     Route: 048
     Dates: start: 20110603, end: 20110615

REACTIONS (5)
  - AGITATION [None]
  - FAECAL INCONTINENCE [None]
  - APHASIA [None]
  - URINARY INCONTINENCE [None]
  - HYPOAESTHESIA [None]
